FAERS Safety Report 16858946 (Version 2)
Quarter: 2019Q4

REPORT INFORMATION
  Report Type: Report from Study
  Country: US (occurrence: US)
  Receive Date: 20190926
  Receipt Date: 20191029
  Transmission Date: 20200122
  Serious: No
  Sender: FDA-Public Use
  Company Number: US-ALLERGAN-1938217US

PATIENT
  Age: 69 Year
  Sex: Female

DRUGS (2)
  1. ASENAPINE MALEATE 2.5MG TAB (TBD) [Suspect]
     Active Substance: ASENAPINE MALEATE
     Indication: BIPOLAR DISORDER
     Dosage: 30 MG, QD
     Route: 048
     Dates: start: 201909, end: 20191002
  2. ASENAPINE MALEATE 2.5MG TAB (TBD) [Suspect]
     Active Substance: ASENAPINE MALEATE
     Dosage: 5 MG, QD
     Route: 048
     Dates: start: 20190904, end: 201909

REACTIONS (8)
  - Insomnia [Recovered/Resolved]
  - Incorrect route of product administration [Unknown]
  - Dry mouth [Recovered/Resolved]
  - Off label use [Unknown]
  - Lip exfoliation [Recovered/Resolved]
  - Restlessness [Recovered/Resolved]
  - Drug ineffective [Unknown]
  - Oral mucosal exfoliation [Recovered/Resolved]

NARRATIVE: CASE EVENT DATE: 201909
